FAERS Safety Report 5315908-2 (Version None)
Quarter: 2007Q1

REPORT INFORMATION
  Report Type: 
  Country: None (occurrence: None)
  Receive Date: 20070130
  Receipt Date: 20061103
  Transmission Date: 20070707
  Serious: No
  Sender: FDA-Public Use
  Company Number: 200619031US

PATIENT
  Age: 42 Year
  Sex: Female

DRUGS (1)
  1. KETEK [Suspect]
     Indication: SINUSITIS
     Dosage: QD
     Dates: start: 20061101, end: 20061101

REACTIONS (1)
  - DIZZINESS [None]
